FAERS Safety Report 25307228 (Version 1)
Quarter: 2025Q2

REPORT INFORMATION
  Report Type: Spontaneous
  Country: AU (occurrence: AU)
  Receive Date: 20250513
  Receipt Date: 20250513
  Transmission Date: 20250716
  Serious: Yes (Hospitalization)
  Sender: MYLAN
  Company Number: AU-MYLANLABS-2025M1040186

PATIENT
  Age: 5 Decade
  Sex: Female

DRUGS (14)
  1. VENLAFAXINE [Suspect]
     Active Substance: VENLAFAXINE HYDROCHLORIDE
     Indication: Persistent postural-perceptual dizziness
     Dosage: 150 MILLIGRAM, AM; IN THE MORNING
  2. VENLAFAXINE [Suspect]
     Active Substance: VENLAFAXINE HYDROCHLORIDE
     Indication: Depression
  3. OLANZAPINE [Suspect]
     Active Substance: OLANZAPINE
     Indication: Anxiety
     Dosage: 5 MILLIGRAM, BID
  4. OLANZAPINE [Suspect]
     Active Substance: OLANZAPINE
     Indication: Poor quality sleep
  5. PROPRANOLOL [Suspect]
     Active Substance: PROPRANOLOL HYDROCHLORIDE
     Indication: Anxiety
     Dosage: 5 MILLIGRAM, BID
  6. MELATONIN [Suspect]
     Active Substance: MELATONIN
     Indication: Poor quality sleep
     Dosage: 7 MILLIGRAM, PM NIGHT-TIME
  7. TEMAZEPAM [Suspect]
     Active Substance: TEMAZEPAM
     Indication: Poor quality sleep
  8. TEMAZEPAM [Suspect]
     Active Substance: TEMAZEPAM
  9. SUMATRIPTAN [Suspect]
     Active Substance: SUMATRIPTAN
     Indication: Persistent postural-perceptual dizziness
  10. BETAHISTINE [Suspect]
     Active Substance: BETAHISTINE
     Indication: Persistent postural-perceptual dizziness
  11. CYPROHEPTADINE [Suspect]
     Active Substance: CYPROHEPTADINE
     Indication: Persistent postural-perceptual dizziness
  12. PIZOTYLINE [Suspect]
     Active Substance: PIZOTYLINE
     Indication: Persistent postural-perceptual dizziness
  13. DOXYLAMINE [Suspect]
     Active Substance: DOXYLAMINE
     Indication: Persistent postural-perceptual dizziness
  14. PROCHLORPERAZINE [Suspect]
     Active Substance: PROCHLORPERAZINE
     Indication: Persistent postural-perceptual dizziness

REACTIONS (2)
  - Therapy non-responder [Unknown]
  - Maternal exposure during pregnancy [Unknown]
